FAERS Safety Report 14449961 (Version 1)
Quarter: 2018Q1

REPORT INFORMATION
  Report Type: Spontaneous
  Country: US (occurrence: US)
  Receive Date: 20180128
  Receipt Date: 20180128
  Transmission Date: 20180509
  Serious: No
  Sender: FDA-Public Use
  Company Number: PHEH2018US003533

PATIENT
  Age: 44 Year
  Sex: Female
  Weight: 85.72 kg

DRUGS (1)
  1. GILENYA [Suspect]
     Active Substance: FINGOLIMOD HYDROCHLORIDE
     Indication: MULTIPLE SCLEROSIS
     Dosage: 0.05 MG, QD
     Route: 048
     Dates: start: 20180122

REACTIONS (7)
  - Decreased appetite [Unknown]
  - Somnolence [Unknown]
  - Dehydration [Unknown]
  - Sluggishness [Unknown]
  - Fatigue [Unknown]
  - Headache [Unknown]
  - Heart rate decreased [Unknown]

NARRATIVE: CASE EVENT DATE: 20180122
